FAERS Safety Report 9127038 (Version 2)
Quarter: 2013Q2

REPORT INFORMATION
  Report Type: Report from Study
  Country: US (occurrence: US)
  Receive Date: 20130228
  Receipt Date: 20130423
  Transmission Date: 20140414
  Serious: Yes (Death, Hospitalization)
  Sender: FDA-Public Use
  Company Number: PHEH2013US004806

PATIENT
  Age: 83 Year
  Sex: Male
  Weight: 70 kg

DRUGS (7)
  1. GLEEVEC [Suspect]
     Indication: CHRONIC MYELOID LEUKAEMIA
     Dosage: 400 MG, DAILY
     Route: 048
     Dates: start: 2007
  2. AMLODIPINE [Concomitant]
     Indication: ARRHYTHMIA
     Dosage: 200 MG, QD
     Route: 048
  3. ARICEPT [Concomitant]
     Indication: DEMENTIA ALZHEIMER^S TYPE
     Dosage: 5 MG, UNK
     Route: 048
  4. CELEXA [Concomitant]
     Indication: DEPRESSION
     Dosage: 20 MG, UNK
     Route: 048
  5. ISOSORBIDE [Concomitant]
     Indication: CORONARY ARTERY DISEASE
     Dosage: 30 MG, UNK
     Route: 048
  6. TORSEMIDE [Concomitant]
     Indication: FLUID RETENTION
     Dosage: 10 MG, UNK
     Route: 048
  7. SPIRONOLACTONE [Concomitant]
     Indication: BLOOD PRESSURE
     Dosage: 12.5 MG, UNK
     Route: 048

REACTIONS (3)
  - Cardiac arrest [Fatal]
  - Muscle abscess [Recovering/Resolving]
  - Anaemia [Unknown]
